FAERS Safety Report 14654653 (Version 5)
Quarter: 2018Q2

REPORT INFORMATION
  Report Type: Report from Study
  Country: None (occurrence: US)
  Receive Date: 20180319
  Receipt Date: 20180605
  Transmission Date: 20180711
  Serious: Yes (Hospitalization, Other)
  Sender: FDA-Public Use
  Company Number: US-ABBVIE-18K-163-2286362-00

PATIENT
  Age: 20 Year
  Sex: Male

DRUGS (2)
  1. HUMIRA [Suspect]
     Active Substance: ADALIMUMAB
     Indication: CROHN^S DISEASE
     Route: 058
     Dates: end: 201803
  2. PREDNISONE. [Suspect]
     Active Substance: PREDNISONE
     Indication: PRODUCT USED FOR UNKNOWN INDICATION
     Route: 065

REACTIONS (12)
  - Feeling hot [Not Recovered/Not Resolved]
  - Psychotic disorder [Unknown]
  - Skin lesion [Not Recovered/Not Resolved]
  - Burning sensation [Unknown]
  - Influenza like illness [Unknown]
  - Nausea [Unknown]
  - Crohn^s disease [Not Recovered/Not Resolved]
  - Immunodeficiency [Unknown]
  - Depression [Unknown]
  - Sleep disorder [Unknown]
  - Vomiting [Unknown]
  - Osteoarthritis [Unknown]

NARRATIVE: CASE EVENT DATE: 2011
